FAERS Safety Report 20025750 (Version 1)
Quarter: 2021Q4

REPORT INFORMATION
  Report Type: Spontaneous
  Country: US (occurrence: US)
  Receive Date: 20211102
  Receipt Date: 20211102
  Transmission Date: 20220303
  Serious: No
  Sender: FDA-Public Use
  Company Number: US-PERRIGO-21US007962

PATIENT
  Age: 70 Year
  Sex: Female
  Weight: 54.422 kg

DRUGS (2)
  1. ERYTHROMYCIN [Suspect]
     Active Substance: ERYTHROMYCIN
     Indication: Eye disorder
     Dosage: SMALL AMOUNT, AT NIGHT, ONCE
     Route: 047
     Dates: start: 202106, end: 202106
  2. UNSPECIFIED INGREDIENT [Concomitant]
     Active Substance: UNSPECIFIED INGREDIENT
     Indication: Thyroid disorder
     Dosage: UNKNOWN, UNKNOWN
     Route: 065

REACTIONS (1)
  - Abnormal sensation in eye [Not Recovered/Not Resolved]

NARRATIVE: CASE EVENT DATE: 20210601
